FAERS Safety Report 9022405 (Version 2)
Quarter: 2013Q1

REPORT INFORMATION
  Report Type: Spontaneous
  Country: BD (occurrence: BD)
  Receive Date: 20130118
  Receipt Date: 20130211
  Transmission Date: 20140127
  Serious: Yes (Other)
  Sender: FDA-Public Use
  Company Number: PHHY2013BD004452

PATIENT
  Age: 42 Year
  Sex: Female

DRUGS (1)
  1. ACLASTA [Suspect]
     Indication: OSTEOPOROSIS
     Dosage: UKN
     Route: 042
     Dates: start: 20121112

REACTIONS (2)
  - Apnoea [Recovered/Resolved]
  - Back pain [Not Recovered/Not Resolved]
